FAERS Safety Report 16744563 (Version 1)
Quarter: 2019Q3

REPORT INFORMATION
  Report Type: Spontaneous
  Country: US (occurrence: US)
  Receive Date: 20190827
  Receipt Date: 20190827
  Transmission Date: 20191005
  Serious: No
  Sender: FDA-Public Use
  Company Number: US-MYLANLABS-2019M1076628

PATIENT
  Sex: Female
  Weight: 64 kg

DRUGS (1)
  1. CROMOLYN SODIUM, USP ORAL CONCENTRATE [Suspect]
     Active Substance: CROMOLYN SODIUM
     Indication: HYPERSENSITIVITY
     Dosage: 1 DOSAGE FORM, QID (ONE VIAL EVERY 6 HOURS)
     Route: 048
     Dates: start: 2019

REACTIONS (5)
  - Off label use [Recovering/Resolving]
  - Product preparation issue [Recovering/Resolving]
  - Oral discomfort [Recovering/Resolving]
  - Throat irritation [Recovering/Resolving]
  - Product use in unapproved indication [Recovering/Resolving]

NARRATIVE: CASE EVENT DATE: 2019
